FAERS Safety Report 7198422-1 (Version None)
Quarter: 2010Q4

REPORT INFORMATION
  Report Type: 
  Country: None (occurrence: None)
  Receive Date: 20101227
  Receipt Date: 20101215
  Transmission Date: 20110411
  Serious: Yes (Other)
  Sender: FDA-Public Use
  Company Number: PHHY2010CA74736

PATIENT

DRUGS (4)
  1. ALISKIREN [Suspect]
     Dosage: UNK DOSE (EVERY DAY)
  2. CALCIUM CHANNEL BLOCKERS [Concomitant]
  3. ACE INHIBITOR [Concomitant]
  4. ANGIOTENSIN II RECEPTOR BLOCKER [Concomitant]

REACTIONS (6)
  - BACK PAIN [None]
  - BLOOD PRESSURE DIASTOLIC DECREASED [None]
  - DRUG INEFFECTIVE [None]
  - HEART RATE DECREASED [None]
  - URINE ALBUMIN/CREATININE RATIO INCREASED [None]
  - VISUAL IMPAIRMENT [None]
